FAERS Safety Report 19636561 (Version 1)
Quarter: 2021Q3

REPORT INFORMATION
  Report Type: Spontaneous
  Country: US (occurrence: US)
  Receive Date: 20210730
  Receipt Date: 20210730
  Transmission Date: 20211014
  Serious: Yes (Hospitalization)
  Sender: FDA-Public Use
  Company Number: None

PATIENT
  Age: 80 Year
  Sex: Female

DRUGS (9)
  1. FUROSEMIDE. [Concomitant]
     Active Substance: FUROSEMIDE
  2. SPIRNOLACT [Concomitant]
  3. CARVEDILOL. [Concomitant]
     Active Substance: CARVEDILOL
  4. CEFDINIR. [Concomitant]
     Active Substance: CEFDINIR
  5. SILDENAFIL 20 MG TAB [Suspect]
     Active Substance: SILDENAFIL
     Indication: ESSENTIAL HYPERTENSION
     Route: 048
     Dates: start: 20201009
  6. ALBUTEROL. [Concomitant]
     Active Substance: ALBUTEROL
  7. ALPRAZOLAM. [Concomitant]
     Active Substance: ALPRAZOLAM
  8. SOTALOL. [Concomitant]
     Active Substance: SOTALOL
  9. HYDRALAZINE [Concomitant]
     Active Substance: HYDRALAZINE HYDROCHLORIDE

REACTIONS (3)
  - Dialysis [None]
  - Dyspnoea [None]
  - Renal disorder [None]

NARRATIVE: CASE EVENT DATE: 20210721
